FAERS Safety Report 4413900-3 (Version None)
Quarter: 2004Q3

REPORT INFORMATION
  Report Type: 
  Country: None (occurrence: None)
  Receive Date: 20040803
  Receipt Date: 20040727
  Transmission Date: 20050211
  Serious: Yes (Other)
  Sender: FDA-Public Use
  Company Number: PHBS2004CA10075

PATIENT
  Sex: Female

DRUGS (1)
  1. ESTRADIOL [Suspect]
     Indication: HORMONE REPLACEMENT THERAPY
     Dosage: 100 UG/DAY
     Route: 062
     Dates: start: 20040101

REACTIONS (8)
  - BLOOD PRESSURE INCREASED [None]
  - DIABETES MELLITUS [None]
  - DYSPNOEA [None]
  - INSOMNIA [None]
  - NIGHT SWEATS [None]
  - OEDEMA PERIPHERAL [None]
  - PYREXIA [None]
  - VENOUS VALVE RUPTURED [None]
